FAERS Safety Report 7396431-0 (Version None)
Quarter: 2011Q2

REPORT INFORMATION
  Report Type: 
  Country: None (occurrence: None)
  Receive Date: 20110406
  Receipt Date: 20110325
  Transmission Date: 20111010
  Serious: Yes (Hospitalization)
  Sender: FDA-Public Use
  Company Number: US-ELI_LILLY_AND_COMPANY-US201103007763

PATIENT
  Age: 59 Year
  Sex: Female

DRUGS (2)
  1. GABAPENTIN [Concomitant]
  2. CYMBALTA [Suspect]
     Indication: DEPRESSION
     Dosage: 60 MG, QD
     Dates: start: 20080101

REACTIONS (3)
  - WRONG TECHNIQUE IN DRUG USAGE PROCESS [None]
  - GASTRIC BYPASS [None]
  - POST PROCEDURAL HAEMORRHAGE [None]
